FAERS Safety Report 22634133 (Version 9)
Quarter: 2025Q1

REPORT INFORMATION
  Report Type: Spontaneous
  Country: US (occurrence: US)
  Receive Date: 20230623
  Receipt Date: 20250327
  Transmission Date: 20250409
  Serious: No
  Sender: PFIZER
  Company Number: US-PFIZER INC-PV202300107149

PATIENT
  Age: 62 Year
  Sex: Female
  Weight: 82.086 kg

DRUGS (13)
  1. XELJANZ XR [Suspect]
     Active Substance: TOFACITINIB CITRATE
     Dosage: 11 MG, 1X/DAY
     Route: 048
  2. CETIRIZINE HYDROCHLORIDE [Concomitant]
     Active Substance: CETIRIZINE HYDROCHLORIDE
  3. FOLIC ACID [Concomitant]
     Active Substance: FOLIC ACID
  4. GABAPENTIN [Concomitant]
     Active Substance: GABAPENTIN
  5. GINKGO [Concomitant]
     Active Substance: GINKGO
  6. METHOTREXATE [Concomitant]
     Active Substance: METHOTREXATE
  7. OMEPRAZOLE [Concomitant]
     Active Substance: OMEPRAZOLE
  8. PILOCARPINE [Concomitant]
     Active Substance: PILOCARPINE
  9. PREDNISONE [Concomitant]
     Active Substance: PREDNISONE
  10. SERTRALINE [Concomitant]
     Active Substance: SERTRALINE HYDROCHLORIDE
  11. TIZANIDINE [Concomitant]
     Active Substance: TIZANIDINE
  12. VALACYCLOVIR HYDROCHLORIDE [Concomitant]
     Active Substance: VALACYCLOVIR HYDROCHLORIDE
  13. VITAMIN B12 [Concomitant]
     Active Substance: CYANOCOBALAMIN

REACTIONS (11)
  - Depression [Unknown]
  - Anxiety [Unknown]
  - Bradykinesia [Unknown]
  - Musculoskeletal stiffness [Unknown]
  - Brain fog [Unknown]
  - Oral herpes [Unknown]
  - Gait disturbance [Unknown]
  - Dyslexia [Unknown]
  - General physical health deterioration [Unknown]
  - Constipation [Unknown]
  - Memory impairment [Unknown]
